FAERS Safety Report 25611710 (Version 1)
Quarter: 2025Q3

REPORT INFORMATION
  Report Type: Spontaneous
  Country: GB (occurrence: GB)
  Receive Date: 20250728
  Receipt Date: 20250728
  Transmission Date: 20251020
  Serious: Yes (Other)
  Sender: KARYOPHARM THERAPEUTICS
  Company Number: GB-KARYOPHARM-2025KPT100408

PATIENT

DRUGS (3)
  1. SELINEXOR [Suspect]
     Active Substance: SELINEXOR
     Indication: Plasma cell myeloma refractory
     Route: 065
  2. SELINEXOR [Suspect]
     Active Substance: SELINEXOR
     Route: 065
  3. SELINEXOR [Suspect]
     Active Substance: SELINEXOR
     Route: 048
     Dates: start: 202506

REACTIONS (5)
  - Hypokalaemia [Not Recovered/Not Resolved]
  - Electrolyte imbalance [Unknown]
  - Blood sodium abnormal [Unknown]
  - Performance status decreased [Recovering/Resolving]
  - Decreased appetite [Recovering/Resolving]
